FAERS Safety Report 14992555 (Version 1)
Quarter: 2018Q2

REPORT INFORMATION
  Report Type: Spontaneous
  Country: DE (occurrence: DE)
  Receive Date: 20180609
  Receipt Date: 20180609
  Transmission Date: 20180711
  Serious: Yes (Hospitalization)
  Sender: FDA-Public Use
  Company Number: DE-TEVA-2018-DE-904052

PATIENT
  Age: 42 Year
  Sex: Female

DRUGS (3)
  1. CISPLATIN. [Suspect]
     Active Substance: CISPLATIN
     Dosage: 40 MG/QM
     Route: 065
  2. ERYFER [Concomitant]
     Dosage: 1-0-0-0
  3. KALINOR-BRAUSETABLETTEN [Concomitant]
     Active Substance: POTASSIUM CARBONATE\POTASSIUM CITRATE
     Dosage: 1-0-1-0

REACTIONS (3)
  - Asthenia [Unknown]
  - Fatigue [Unknown]
  - Leukopenia [Unknown]
